FAERS Safety Report 9167233 (Version 1)
Quarter: 2013Q1

REPORT INFORMATION
  Report Type: Spontaneous
  Country: CN (occurrence: None)
  Receive Date: 20130304
  Receipt Date: 20130304
  Transmission Date: 20140127
  Serious: Yes (Hospitalization)
  Sender: FDA-Public Use
  Company Number: VAL_01396_2013

PATIENT
  Sex: 0

DRUGS (1)
  1. CALCITRIOL [Suspect]
     Indication: IGA NEPHROPATHY

REACTIONS (1)
  - Nephrolithiasis [None]
